FAERS Safety Report 5450994-0 (Version None)
Quarter: 2007Q3

REPORT INFORMATION
  Report Type: 
  Country: None (occurrence: None)
  Receive Date: 20070911
  Receipt Date: 20070911
  Transmission Date: 20080115
  Serious: Yes (Other)
  Sender: FDA-Public Use
  Company Number: None

PATIENT
  Sex: Female

DRUGS (1)
  1. ALLEGRA-D 12 HOUR [Suspect]
     Indication: HYPERSENSITIVITY
     Dosage: 60 MG BID PO
     Route: 048
     Dates: start: 20070823, end: 20070904

REACTIONS (1)
  - NO ADVERSE REACTION [None]
